FAERS Safety Report 15723694 (Version 2)
Quarter: 2018Q4

REPORT INFORMATION
  Report Type: Spontaneous
  Country: US (occurrence: US)
  Receive Date: 20181214
  Receipt Date: 20181217
  Transmission Date: 20190205
  Serious: No
  Sender: FDA-Public Use
  Company Number: US-B.I. PHARMACEUTICALS,INC./RIDGEFIELD-2018-BI-058955

PATIENT
  Age: 4 Month
  Sex: Male

DRUGS (5)
  1. TRADJENTA [Suspect]
     Active Substance: LINAGLIPTIN
     Indication: TYPE 2 DIABETES MELLITUS
     Dosage: FORMULATION: TABLET? ADMINISTRATION CORRECT? YES ?ACTION(S) TAKEN: DOSE NOT CHANGED
     Route: 048
     Dates: start: 20181115
  2. GLIPIZIDE. [Concomitant]
     Active Substance: GLIPIZIDE
     Indication: TYPE 2 DIABETES MELLITUS
     Dosage: I TABLET TWICE DAILY;  FORM STRENGTH: 5MG; FORMULATION: TABLET
     Route: 048
     Dates: start: 2018
  3. ASA [Concomitant]
     Active Substance: ASPIRIN
     Indication: DRUG THERAPY
     Dosage: 1 TABLET DAILY;  FORM STRENGTH: 325MG; FORMULATION: TABLET
     Route: 048
     Dates: start: 201808
  4. LANTUS [Concomitant]
     Active Substance: INSULIN GLARGINE
     Indication: TYPE 2 DIABETES MELLITUS
     Dosage: AT BEDTIME BASED ON BLOOD SUGAR;  FORM STRENGTH: 10 UNITS; FORMULATION: SUBCUTANEOUS
     Route: 058
     Dates: start: 20181102
  5. CLOPIDOGREL [Concomitant]
     Active Substance: CLOPIDOGREL BISULFATE
     Indication: DRUG THERAPY
     Dosage: 1 TABLET DAILY;  FORM STRENGTH: 75MG; FORMULATION: TABLET
     Route: 048
     Dates: start: 201808

REACTIONS (4)
  - Constipation [Not Recovered/Not Resolved]
  - Flushing [Not Recovered/Not Resolved]
  - Product quality issue [Unknown]
  - Abdominal pain upper [Not Recovered/Not Resolved]

NARRATIVE: CASE EVENT DATE: 201811
